FAERS Safety Report 4576861-2 (Version None)
Quarter: 2005Q1

REPORT INFORMATION
  Report Type: 
  Country: None (occurrence: None)
  Receive Date: 20050207
  Receipt Date: 20050124
  Transmission Date: 20050727
  Serious: Yes (Hospitalization)
  Sender: FDA-Public Use
  Company Number: 2004BI001565

PATIENT
  Age: 50 Year
  Sex: Female
  Weight: 104.3273 kg

DRUGS (2)
  1. AVONEX [Suspect]
     Indication: MULTIPLE SCLEROSIS
     Dosage: 30UG;QW;IM
     Route: 030
     Dates: start: 20040601, end: 20041028
  2. BLOOD PRESSURE PILLS [Concomitant]

REACTIONS (6)
  - CHEST X-RAY ABNORMAL [None]
  - OBESITY [None]
  - POST PROCEDURAL COMPLICATION [None]
  - SMALL INTESTINAL PERFORATION [None]
  - STAPHYLOCOCCAL INFECTION [None]
  - WOUND INFECTION [None]
